FAERS Safety Report 7679359-8 (Version None)
Quarter: 2011Q3

REPORT INFORMATION
  Report Type: 
  Country: None (occurrence: None)
  Receive Date: 20110812
  Receipt Date: 20110803
  Transmission Date: 20111222
  Serious: No
  Sender: FDA-Public Use
  Company Number: PHEH2011US01222

PATIENT
  Sex: Female

DRUGS (9)
  1. BONIVA [Concomitant]
  2. TASIGNA [Suspect]
     Indication: CHRONIC MYELOID LEUKAEMIA
     Dosage: 200 MG, BID
     Route: 048
     Dates: start: 20080801
  3. OMEPRAZOLE [Concomitant]
     Dosage: UNK
  4. FUROSEMIDE [Concomitant]
  5. CEFPROZIL [Concomitant]
  6. CRESTOR [Concomitant]
  7. PLAVIX [Concomitant]
  8. POTASSIUM [Concomitant]
  9. METOPROLOL TARTRATE [Concomitant]

REACTIONS (1)
  - DYSPNOEA [None]
